FAERS Safety Report 23679635 (Version 1)
Quarter: 2024Q1

REPORT INFORMATION
  Report Type: Spontaneous
  Country: CA (occurrence: CA)
  Receive Date: 20240327
  Receipt Date: 20240327
  Transmission Date: 20240409
  Serious: Yes (Other)
  Sender: FDA-Public Use
  Company Number: CA-ABBVIE-5691875

PATIENT

DRUGS (1)
  1. HUMIRA [Suspect]
     Active Substance: ADALIMUMAB
     Indication: Behcet^s syndrome
     Route: 058

REACTIONS (6)
  - Genital ulceration [Unknown]
  - Uveitis [Unknown]
  - Off label use [Unknown]
  - Erythema [Unknown]
  - Arthritis [Unknown]
  - Mouth ulceration [Unknown]
